FAERS Safety Report 19903007 (Version 1)
Quarter: 2021Q4

REPORT INFORMATION
  Report Type: Spontaneous
  Country: US (occurrence: US)
  Receive Date: 20211001
  Receipt Date: 20211001
  Transmission Date: 20220304
  Serious: No
  Sender: FDA-Public Use
  Company Number: US-BOEHRINGERINGELHEIM-2021-BI-129796

PATIENT
  Age: 36 Year
  Sex: Male

DRUGS (2)
  1. SPIRIVA RESPIMAT [Suspect]
     Active Substance: TIOTROPIUM BROMIDE
     Indication: Asthma
     Dosage: 1 BIG INHALE, HOLD IT IN FOR TEN SECONDS THEN BLOW IT OUT ONCE A DAY
     Dates: start: 20210901, end: 20210927
  2. CANNABIS SATIVA SUBSP. INDICA TOP [Concomitant]
     Active Substance: CANNABIS SATIVA SUBSP. INDICA TOP
     Indication: Anxiety
     Dosage: I VAPE IT AS NEEDED

REACTIONS (6)
  - Photopsia [Recovered/Resolved]
  - Oropharyngeal pain [Recovering/Resolving]
  - Ocular discomfort [Not Recovered/Not Resolved]
  - Throat irritation [Recovering/Resolving]
  - Constipation [Recovering/Resolving]
  - Wrong product administered [Unknown]

NARRATIVE: CASE EVENT DATE: 20210927
